FAERS Safety Report 7304278-6 (Version None)
Quarter: 2011Q1

REPORT INFORMATION
  Report Type: 
  Country: None (occurrence: None)
  Receive Date: 20110221
  Receipt Date: 20110211
  Transmission Date: 20110831
  Serious: Yes (Hospitalization, Other)
  Sender: FDA-Public Use
  Company Number: US-BAYER-2011-015469

PATIENT
  Sex: Female

DRUGS (1)
  1. YAZ [Suspect]
     Indication: PRODUCT USED FOR UNKNOWN INDICATION
     Dosage: UNK
     Dates: start: 20080918

REACTIONS (13)
  - PELVIC PAIN [None]
  - NAUSEA [None]
  - GENITAL HAEMORRHAGE [None]
  - ABDOMINAL PAIN [None]
  - BACK PAIN [None]
  - ANXIETY [None]
  - URINARY TRACT INFECTION [None]
  - CONSTIPATION [None]
  - VOMITING [None]
  - OVARIAN CYST [None]
  - VAGINAL HAEMORRHAGE [None]
  - ILEUS [None]
  - PAIN [None]
